FAERS Safety Report 25752866 (Version 1)
Quarter: 2025Q3

REPORT INFORMATION
  Report Type: Spontaneous
  Country: EU (occurrence: EU)
  Receive Date: 20250902
  Receipt Date: 20250902
  Transmission Date: 20251021
  Serious: Yes (Life-Threatening, Hospitalization, Other)
  Sender: SANOFI AVENTIS
  Company Number: None

PATIENT
  Age: 60 Year
  Sex: Male
  Weight: 67 kg

DRUGS (6)
  1. OXALIPLATIN [Suspect]
     Active Substance: OXALIPLATIN
     Indication: T-cell lymphoma
     Route: 042
     Dates: start: 20250718, end: 20250718
  2. ONCASPAR [Suspect]
     Active Substance: PEGASPARGASE
     Indication: T-cell lymphoma
     Route: 042
     Dates: start: 20250721, end: 20250721
  3. ONCASPAR [Suspect]
     Active Substance: PEGASPARGASE
     Route: 042
     Dates: start: 20250804, end: 20250804
  4. METHOTREXATE [Suspect]
     Active Substance: METHOTREXATE
     Indication: T-cell lymphoma
     Route: 042
     Dates: start: 20250717, end: 20250717
  5. GEMCITABINE HYDROCHLORIDE [Suspect]
     Active Substance: GEMCITABINE HYDROCHLORIDE
     Indication: T-cell lymphoma
     Route: 042
     Dates: start: 20250717, end: 20250717
  6. GEMCITABINE HYDROCHLORIDE [Suspect]
     Active Substance: GEMCITABINE HYDROCHLORIDE
     Route: 042
     Dates: start: 20250724, end: 20250724

REACTIONS (1)
  - Haemophagocytic lymphohistiocytosis [Recovering/Resolving]

NARRATIVE: CASE EVENT DATE: 20250804
